FAERS Safety Report 19400397 (Version 2)
Quarter: 2021Q2

REPORT INFORMATION
  Report Type: Spontaneous
  Country: CZ (occurrence: CZ)
  Receive Date: 20210610
  Receipt Date: 20210627
  Transmission Date: 20210717
  Serious: Yes (Death, Hospitalization, Other)
  Sender: FDA-Public Use
  Company Number: NVSC2021CZ125638

PATIENT
  Age: 50 Year
  Sex: Male

DRUGS (13)
  1. BENDAMUSTINE [Concomitant]
     Active Substance: BENDAMUSTINE
     Indication: PRODUCT USED FOR UNKNOWN INDICATION
     Dosage: UNK
     Route: 065
     Dates: start: 20201228
  2. CIFLOXINAL [Concomitant]
     Active Substance: CIPROFLOXACIN HYDROCHLORIDE
     Indication: PRODUCT USED FOR UNKNOWN INDICATION
     Dosage: 500 MG (1?0?1)
     Route: 065
  3. KYMRIAH [Suspect]
     Active Substance: TISAGENLECLEUCEL
     Indication: CENTRAL NERVOUS SYSTEM NEOPLASM
     Dosage: 3.3 X 10 (8))
     Route: 065
     Dates: start: 20210429
  4. OXYCODON LANNACHER [Concomitant]
     Active Substance: OXYCODONE
     Indication: PRODUCT USED FOR UNKNOWN INDICATION
     Dosage: 10 MG (1?0?1)
     Route: 065
  5. BENDAMUSTINE [Concomitant]
     Active Substance: BENDAMUSTINE
     Dosage: 75 MG/M2, D1?2
     Route: 065
     Dates: start: 20210426
  6. MOVENTIG [Concomitant]
     Active Substance: NALOXEGOL OXALATE
     Indication: PRODUCT USED FOR UNKNOWN INDICATION
     Dosage: 25 MG (1?0?0 2X WEEKLY ON TUESDAYS AND ON THURSDAYS)
     Route: 065
  7. KYMRIAH [Suspect]
     Active Substance: TISAGENLECLEUCEL
     Indication: DIFFUSE LARGE B-CELL LYMPHOMA
     Dosage: 3.3 X 10 (8)
     Route: 065
     Dates: start: 20201231
  8. BETASERC [Concomitant]
     Active Substance: BETAHISTINE
     Indication: PRODUCT USED FOR UNKNOWN INDICATION
     Dosage: 24 MG (1?1?1)
     Route: 065
  9. VALACYCLOVIR [Concomitant]
     Active Substance: VALACYCLOVIR HYDROCHLORIDE
     Indication: PRODUCT USED FOR UNKNOWN INDICATION
     Dosage: 500 MG
     Route: 065
  10. BISEPTOL [Concomitant]
     Active Substance: SULFAMETHOXAZOLE\TRIMETHOPRIM
     Indication: PRODUCT USED FOR UNKNOWN INDICATION
     Dosage: UNK (400MG/80MG, 0?1?0)
     Route: 065
  11. MYCOMAX [Concomitant]
     Active Substance: FLUCONAZOLE
     Indication: PRODUCT USED FOR UNKNOWN INDICATION
     Dosage: 100 MG (1?0?1)
     Route: 065
  12. KEPPRA [Concomitant]
     Active Substance: LEVETIRACETAM
     Indication: PRODUCT USED FOR UNKNOWN INDICATION
     Dosage: 500 MG (1?0?1)
     Route: 065
  13. HELICID [Concomitant]
     Active Substance: OMEPRAZOLE
     Indication: PRODUCT USED FOR UNKNOWN INDICATION
     Dosage: 20 MG (1?0?0)
     Route: 065

REACTIONS (15)
  - Malignant neoplasm progression [Fatal]
  - Dental caries [Unknown]
  - Febrile neutropenia [Recovering/Resolving]
  - Hypersensitivity [Unknown]
  - Deafness [Unknown]
  - Pain in extremity [Unknown]
  - Cytokine release syndrome [Not Recovered/Not Resolved]
  - Infection [Recovering/Resolving]
  - Pancytopenia [Unknown]
  - Paresis [Unknown]
  - Tinnitus [Unknown]
  - Mucosal inflammation [Unknown]
  - Off label use [Unknown]
  - Diffuse large B-cell lymphoma [Fatal]
  - Haematotoxicity [Unknown]

NARRATIVE: CASE EVENT DATE: 20210102
